FAERS Safety Report 18272070 (Version 1)
Quarter: 2020Q3

REPORT INFORMATION
  Report Type: Report from Study
  Country: CA (occurrence: CA)
  Receive Date: 20200916
  Receipt Date: 20200916
  Transmission Date: 20201103
  Serious: Yes (Hospitalization, Other)
  Sender: FDA-Public Use
  Company Number: CA-ACCORD-200810

PATIENT
  Age: 72 Year
  Sex: Male

DRUGS (26)
  1. METHOTREXATE. [Suspect]
     Active Substance: METHOTREXATE
     Indication: PRODUCT USED FOR UNKNOWN INDICATION
     Dosage: 1 EVERY 1 WEEKS
  2. DICLOFENAC [Suspect]
     Active Substance: DICLOFENAC
     Indication: PRODUCT USED FOR UNKNOWN INDICATION
  3. MORPHINE [Suspect]
     Active Substance: MORPHINE
     Indication: PRODUCT USED FOR UNKNOWN INDICATION
  4. ZADITOR [Concomitant]
     Active Substance: KETOTIFEN FUMARATE
  5. STELARA [Concomitant]
     Active Substance: USTEKINUMAB
     Route: 058
  6. NAPROXEN. [Concomitant]
     Active Substance: NAPROXEN
  7. INDOMETACIN [Concomitant]
     Active Substance: INDOMETHACIN
  8. CELEBREX [Concomitant]
     Active Substance: CELECOXIB
  9. METFORMIN [Suspect]
     Active Substance: METFORMIN HYDROCHLORIDE
     Indication: PRODUCT USED FOR UNKNOWN INDICATION
  10. IBUPROFEN. [Concomitant]
     Active Substance: IBUPROFEN
  11. ERELZI [Concomitant]
     Active Substance: ETANERCEPT-SZZS
  12. SULFASALAZINE. [Concomitant]
     Active Substance: SULFASALAZINE
  13. NITROGLYCERIN. [Concomitant]
     Active Substance: NITROGLYCERIN
  14. ORENCIA [Concomitant]
     Active Substance: ABATACEPT
  15. ATROPINE. [Suspect]
     Active Substance: ATROPINE
     Indication: PRODUCT USED FOR UNKNOWN INDICATION
  16. MELOXICAM. [Concomitant]
     Active Substance: MELOXICAM
  17. DESOXIMETASONE. [Concomitant]
     Active Substance: DESOXIMETASONE
  18. CIMZIA [Concomitant]
     Active Substance: CERTOLIZUMAB PEGOL
     Route: 058
  19. LEFLUNOMIDE. [Suspect]
     Active Substance: LEFLUNOMIDE
     Indication: PRODUCT USED FOR UNKNOWN INDICATION
     Dosage: 1 EVERY 1 DAYS
  20. ENBREL [Concomitant]
     Active Substance: ETANERCEPT
  21. DILAUDID [Concomitant]
     Active Substance: HYDROMORPHONE HYDROCHLORIDE
  22. HYDROCORTISONE. [Concomitant]
     Active Substance: HYDROCORTISONE
  23. SIMPONI [Concomitant]
     Active Substance: GOLIMUMAB
     Route: 058
  24. PREDNISONE. [Concomitant]
     Active Substance: PREDNISONE
  25. HYDROXYCHLOROQUINE [Concomitant]
     Active Substance: HYDROXYCHLOROQUINE
  26. FUSIDIC ACID [Concomitant]
     Active Substance: FUSIDIC ACID

REACTIONS (11)
  - Fall [Unknown]
  - Synovitis [Unknown]
  - Drug ineffective [Unknown]
  - Mobility decreased [Unknown]
  - Osteoarthritis [Unknown]
  - Tendon disorder [Unknown]
  - Foot deformity [Unknown]
  - Foot fracture [Unknown]
  - Ankle fracture [Unknown]
  - Exostosis [Unknown]
  - Psoriatic arthropathy [Unknown]
